FAERS Safety Report 10479842 (Version 1)
Quarter: 2014Q3

REPORT INFORMATION
  Report Type: Spontaneous
  Country: US (occurrence: None)
  Receive Date: 20140925
  Receipt Date: 20140925
  Transmission Date: 20150326
  Serious: Yes (Other)
  Sender: FDA-Public Use
  Company Number: 2014HINLIT0840

PATIENT
  Age: 33 Year
  Sex: Male

DRUGS (7)
  1. STAVUDINE (STAVUDINE) UNKNOWN [Suspect]
     Active Substance: STAVUDINE
     Indication: HIV INFECTION
  2. LAMIVUDINE (LAMIVUDINE) UNKNOWN [Suspect]
     Active Substance: LAMIVUDINE
     Indication: HIV INFECTION
  3. RITONAVIR (RITONAVIR) [Suspect]
     Active Substance: RITONAVIR
     Indication: HIV INFECTION
  4. FLUTICASONE PROPIONATE (FLUTICASONE PROPIONATE) (FLUTICASONE PROPIONATE) [Suspect]
     Active Substance: FLUTICASONE PROPIONATE
     Indication: PRODUCT USED FOR UNKNOWN INDICATION
     Dosage: 1000, UNKNOWN
  5. TERBUTALINE [Concomitant]
     Active Substance: TERBUTALINE
  6. SALMETEROL [Concomitant]
     Active Substance: SALMETEROL
  7. APV (AMPRENAVIR) (APV (AMPRENAVIR)) [Suspect]
     Active Substance: AMPRENAVIR
     Indication: HIV INFECTION

REACTIONS (3)
  - Drug interaction [None]
  - Cushingoid [None]
  - Oesophageal candidiasis [None]
